FAERS Safety Report 14659667 (Version 1)
Quarter: 2018Q1

REPORT INFORMATION
  Report Type: Spontaneous
  Country: CH (occurrence: CH)
  Receive Date: 20180320
  Receipt Date: 20180320
  Transmission Date: 20180509
  Serious: Yes (Other)
  Sender: FDA-Public Use
  Company Number: CH-BAYER-2018-048900

PATIENT
  Age: 66 Year
  Sex: Male
  Weight: 88 kg

DRUGS (1)
  1. ULTRAVIST [Suspect]
     Active Substance: IOPROMIDE
     Indication: ARTERIOGRAM CORONARY
     Dosage: 300 MG, ONCE
     Route: 013
     Dates: start: 20180221, end: 20180221

REACTIONS (4)
  - Nasal obstruction [Recovered/Resolved]
  - Oral discomfort [Recovered/Resolved]
  - Lip swelling [Recovered/Resolved]
  - Dyspnoea [Recovered/Resolved]

NARRATIVE: CASE EVENT DATE: 20180221
